FAERS Safety Report 7790845-2 (Version None)
Quarter: 2011Q3

REPORT INFORMATION
  Report Type: 
  Country: None (occurrence: None)
  Receive Date: 20110930
  Receipt Date: 20110921
  Transmission Date: 20111222
  Serious: Yes (Other)
  Sender: FDA-Public Use
  Company Number: US-ASTRAZENECA-2010SE22361

PATIENT
  Age: 58 Year
  Sex: Female

DRUGS (1)
  1. ATACAND [Suspect]
     Route: 048

REACTIONS (6)
  - CONCUSSION [None]
  - RIB FRACTURE [None]
  - WOUND INFECTION [None]
  - TRANSIENT ISCHAEMIC ATTACK [None]
  - ROAD TRAFFIC ACCIDENT [None]
  - FACIAL BONES FRACTURE [None]
